FAERS Safety Report 22117217 (Version 2)
Quarter: 2023Q1

REPORT INFORMATION
  Report Type: Spontaneous
  Country: ES (occurrence: ES)
  Receive Date: 20230320
  Receipt Date: 20230330
  Transmission Date: 20230418
  Serious: Yes (Other)
  Sender: FDA-Public Use
  Company Number: ES-BAXTER-2023BAX015976

PATIENT
  Age: 47 Year
  Sex: Female

DRUGS (5)
  1. DOXORUBICIN [Suspect]
     Active Substance: DOXORUBICIN
     Indication: Invasive ductal breast carcinoma
     Dosage: 5 LINE TREATMENT
     Route: 065
  2. CYCLOPHOSPHAMIDE [Suspect]
     Active Substance: CYCLOPHOSPHAMIDE
     Indication: Invasive ductal breast carcinoma
     Dosage: 5 LINE TREATMENT
     Route: 065
  3. ERDAFITINIB [Suspect]
     Active Substance: ERDAFITINIB
     Indication: Invasive ductal breast carcinoma
     Dosage: 3 MG, Q24H
     Route: 048
     Dates: start: 20220818, end: 20221007
  4. ERDAFITINIB [Suspect]
     Active Substance: ERDAFITINIB
     Dosage: 4 MG, Q24H
     Route: 048
     Dates: start: 20220818, end: 20221007
  5. ERDAFITINIB [Suspect]
     Active Substance: ERDAFITINIB
     Dosage: 5 MG, Q24H
     Route: 048
     Dates: start: 20220818, end: 20221007

REACTIONS (1)
  - Liver disorder [Unknown]

NARRATIVE: CASE EVENT DATE: 20220922
